FAERS Safety Report 4803618-7 (Version None)
Quarter: 2005Q4

REPORT INFORMATION
  Report Type: 
  Country: None (occurrence: None)
  Receive Date: 20051011
  Receipt Date: 20050303
  Transmission Date: 20060501
  Serious: No
  Sender: FDA-Public Use
  Company Number: 05P-163-0292826-00

PATIENT
  Age: 18 Year
  Sex: Female
  Weight: 55.3388 kg

DRUGS (1)
  1. DEPAKOTE [Suspect]
     Indication: MIGRAINE
     Dosage: 125 MG, TWO TABLETS TWICE DAILY, PER ORAL
     Route: 048
     Dates: start: 20040301, end: 20050211

REACTIONS (1)
  - PANCREATITIS [None]
